FAERS Safety Report 16644587 (Version 1)
Quarter: 2019Q3

REPORT INFORMATION
  Report Type: Spontaneous
  Country: US (occurrence: US)
  Receive Date: 20190729
  Receipt Date: 20190729
  Transmission Date: 20191004
  Serious: Yes (Other)
  Sender: FDA-Public Use
  Company Number: US-ABBVIE-19K-163-2866038-00

PATIENT
  Sex: Female

DRUGS (11)
  1. ALIGN [Concomitant]
     Active Substance: BIFIDOBACTERIUM LONGUM SUBSP. INFANTIS
     Indication: GASTRIC DISORDER
     Dates: start: 2018
  2. LEFLUNOMIDE. [Concomitant]
     Active Substance: LEFLUNOMIDE
     Indication: PRODUCT USED FOR UNKNOWN INDICATION
     Dates: start: 2014
  3. XELJANZ [Suspect]
     Active Substance: TOFACITINIB CITRATE
     Indication: SYSTEMIC LUPUS ERYTHEMATOSUS
  4. ADVIL [Concomitant]
     Active Substance: IBUPROFEN
     Indication: PRODUCT USED FOR UNKNOWN INDICATION
  5. XELJANZ [Suspect]
     Active Substance: TOFACITINIB CITRATE
     Indication: RHEUMATOID ARTHRITIS
     Route: 065
     Dates: start: 2018
  6. HUMIRA [Suspect]
     Active Substance: ADALIMUMAB
     Indication: RHEUMATOID ARTHRITIS
     Route: 058
     Dates: start: 2006
  7. PLAQUENIL [Concomitant]
     Active Substance: HYDROXYCHLOROQUINE SULFATE
     Indication: RHEUMATOID ARTHRITIS
  8. PLAQUENIL [Concomitant]
     Active Substance: HYDROXYCHLOROQUINE SULFATE
     Indication: SYSTEMIC LUPUS ERYTHEMATOSUS
     Dates: start: 2005
  9. VITAMIN D2 [Concomitant]
     Active Substance: ERGOCALCIFEROL
     Indication: PRODUCT USED FOR UNKNOWN INDICATION
     Dates: start: 2018
  10. VITAMIN B12 [Concomitant]
     Active Substance: CYANOCOBALAMIN
     Indication: PRODUCT USED FOR UNKNOWN INDICATION
     Dates: start: 2018
  11. PLAQUENIL [Concomitant]
     Active Substance: HYDROXYCHLOROQUINE SULFATE
     Indication: SYSTEMIC LUPUS ERYTHEMATOSUS
     Dates: start: 2018

REACTIONS (38)
  - Antinuclear antibody positive [Unknown]
  - Synovitis [Unknown]
  - Inflammatory marker increased [Unknown]
  - Oedema peripheral [Unknown]
  - Joint stiffness [Unknown]
  - Rotator cuff syndrome [Unknown]
  - Foot fracture [Not Recovered/Not Resolved]
  - Gastrooesophageal reflux disease [Unknown]
  - Rash papular [Unknown]
  - Rash maculo-papular [Unknown]
  - Dermatitis [Unknown]
  - Proteinuria [Unknown]
  - Rash papular [Unknown]
  - Eosinophilia [Unknown]
  - Leukopenia [Unknown]
  - Rash [Unknown]
  - Arthritis [Unknown]
  - Parakeratosis [Unknown]
  - Systemic lupus erythematosus [Unknown]
  - Condition aggravated [Unknown]
  - Lymphopenia [Unknown]
  - Blister [Unknown]
  - Bursitis [Unknown]
  - Weight loss poor [Not Recovered/Not Resolved]
  - Bone density decreased [Not Recovered/Not Resolved]
  - Rheumatoid factor [Unknown]
  - Neutropenia [Unknown]
  - Dyspepsia [Unknown]
  - Dermatitis [Unknown]
  - Mouth ulceration [Unknown]
  - Rash erythematous [Unknown]
  - Hyaluronic acid increased [Unknown]
  - Monoclonal gammopathy [Unknown]
  - Dry eye [Unknown]
  - Arthralgia [Unknown]
  - Inflammation [Unknown]
  - Anti-cyclic citrullinated peptide antibody positive [Unknown]
  - Rheumatoid arthritis [Unknown]

NARRATIVE: CASE EVENT DATE: 2008
